FAERS Safety Report 9054749 (Version 2)
Quarter: 2013Q2

REPORT INFORMATION
  Report Type: Spontaneous
  Country: US (occurrence: US)
  Receive Date: 20130208
  Receipt Date: 20130401
  Transmission Date: 20140414
  Serious: Yes (Other)
  Sender: FDA-Public Use
  Company Number: US-PFIZER INC-2013051552

PATIENT
  Age: 45 Year
  Sex: Female
  Weight: 76.19 kg

DRUGS (4)
  1. EFFEXOR [Suspect]
     Indication: ANXIETY
     Dosage: 37.5 MG, 1X/DAY
     Route: 048
     Dates: end: 200702
  2. EFFEXOR [Suspect]
     Dosage: 187.5 MG, 1X/DAY
     Route: 048
     Dates: start: 200702, end: 200704
  3. EFFEXOR [Suspect]
     Dosage: 37.5 MG, 1X/DAY
     Dates: start: 200704
  4. PROTONIX [Concomitant]
     Dosage: UNK

REACTIONS (4)
  - Uterine disorder [Unknown]
  - Blood urine present [Unknown]
  - Drug intolerance [Unknown]
  - Anger [Unknown]
